FAERS Safety Report 25343293 (Version 1)
Quarter: 2025Q2

REPORT INFORMATION
  Report Type: Spontaneous
  Country: TW (occurrence: TW)
  Receive Date: 20250521
  Receipt Date: 20250521
  Transmission Date: 20250716
  Serious: Yes (Other)
  Sender: GUERBET
  Company Number: None

PATIENT
  Age: 12 Year
  Sex: Female
  Weight: 32.05 kg

DRUGS (6)
  1. DOTAREM [Suspect]
     Active Substance: GADOTERATE MEGLUMINE
     Indication: Magnetic resonance imaging spinal
     Route: 042
     Dates: start: 20250416, end: 20250416
  2. AMBROXOL HYDROCHLORIDE 3MG/ML [Concomitant]
     Indication: Product used for unknown indication
     Route: 048
     Dates: start: 20250415, end: 20250417
  3. KASCOAL [Concomitant]
     Indication: Product used for unknown indication
     Route: 048
  4. BIOFERMIN-R POWDER [Concomitant]
     Indication: Product used for unknown indication
     Route: 048
  5. MAGNESIUM OXIDE [Concomitant]
     Active Substance: MAGNESIUM OXIDE
     Indication: Product used for unknown indication
     Route: 048
  6. Dulcolax [Concomitant]
     Indication: Product used for unknown indication
     Route: 048

REACTIONS (5)
  - Dizziness [Recovering/Resolving]
  - Hypotension [Recovering/Resolving]
  - Visual impairment [Recovering/Resolving]
  - Anaphylactic reaction [Recovering/Resolving]
  - Hypoaesthesia [Unknown]

NARRATIVE: CASE EVENT DATE: 20250416
